FAERS Safety Report 8518790-5 (Version None)
Quarter: 2012Q3

REPORT INFORMATION
  Report Type: 
  Country: None (occurrence: None)
  Receive Date: 20120718
  Receipt Date: 20120711
  Transmission Date: 20120928
  Serious: Yes (Hospitalization)
  Sender: FDA-Public Use
  Company Number: PHHY2012JP042032

PATIENT
  Age: 77 Year
  Sex: Male

DRUGS (11)
  1. PROTECADIN [Concomitant]
     Dosage: UNK UKN, UNK
     Route: 048
  2. CEFACLOR [Suspect]
     Dosage: UNK UKN, UNK
     Route: 048
     Dates: start: 20120412
  3. DEPAKENE [Suspect]
     Dosage: UNK UKN, UNK
     Route: 048
     Dates: start: 20120418
  4. CYSCARBON [Concomitant]
     Dosage: UNK UKN, UNK
     Route: 048
     Dates: start: 20111029
  5. FEBURIC [Concomitant]
     Dosage: UNK UKN, UNK
     Route: 048
     Dates: start: 20111114
  6. TEGRETOL [Suspect]
     Indication: EPILEPSY
     Dosage: UNK UKN, UNK
     Route: 048
     Dates: start: 20120316, end: 20120418
  7. KEPPRA [Suspect]
     Dosage: UNK UKN, UNK
     Route: 048
     Dates: start: 20120418
  8. HOKUNALIN [Concomitant]
     Route: 062
  9. CLARITHROMYCIN [Suspect]
     Dosage: UNK UKN, UNK
     Route: 048
     Dates: start: 20111129, end: 20111206
  10. ASPIRIN [Concomitant]
     Dosage: UNK UKN, UNK
     Route: 048
     Dates: start: 20100101
  11. TEOFURMATE [Concomitant]
     Route: 048

REACTIONS (25)
  - PIGMENTATION DISORDER [None]
  - HUMAN HERPESVIRUS 6 INFECTION [None]
  - ERYTHEMA MULTIFORME [None]
  - DRUG ERUPTION [None]
  - URINARY TRACT INFECTION [None]
  - RASH [None]
  - EXTRAVASATION BLOOD [None]
  - DELIRIUM [None]
  - LIVER DISORDER [None]
  - DERMATITIS [None]
  - INJECTION SITE INDURATION [None]
  - MASS [None]
  - ERYTHEMA [None]
  - LYMPHOCYTIC INFILTRATION [None]
  - LYMPHOCYTE STIMULATION TEST POSITIVE [None]
  - PRURITUS [None]
  - EPIDERMAL NECROSIS [None]
  - ABDOMINAL PAIN [None]
  - ADRENAL INSUFFICIENCY [None]
  - INSOMNIA [None]
  - BLOOD POTASSIUM INCREASED [None]
  - MALAISE [None]
  - PYREXIA [None]
  - GRAM STAIN POSITIVE [None]
  - MYCOPLASMA TEST POSITIVE [None]
